FAERS Safety Report 10368078 (Version 1)
Quarter: 2014Q3

REPORT INFORMATION
  Report Type: Spontaneous
  Country: US (occurrence: None)
  Receive Date: 20140806
  Receipt Date: 20140806
  Transmission Date: 20150326
  Serious: No
  Sender: FDA-Public Use
  Company Number: None

PATIENT
  Age: 1 Year
  Sex: Female
  Weight: 9.53 kg

DRUGS (1)
  1. WAL DRYL ALLERGY CHILDRENS [Suspect]
     Active Substance: DIPHENHYDRAMINE HYDROCHLORIDE
     Indication: HYPERSENSITIVITY
     Route: 048
     Dates: start: 20140805, end: 20140805

REACTIONS (7)
  - Sedation [None]
  - Movement disorder [None]
  - Mydriasis [None]
  - Accidental overdose [None]
  - Eye movement disorder [None]
  - Balance disorder [None]
  - Somnolence [None]

NARRATIVE: CASE EVENT DATE: 20140805
